FAERS Safety Report 8112392-0 (Version None)
Quarter: 2012Q1

REPORT INFORMATION
  Report Type: 
  Country: None (occurrence: None)
  Receive Date: 20120131
  Receipt Date: 20120118
  Transmission Date: 20120608
  Serious: Yes (Other)
  Sender: FDA-Public Use
  Company Number: AUR-APL-2012-00663

PATIENT
  Age: 56 Year
  Sex: Male
  Weight: 108.8 kg

DRUGS (5)
  1. GABAPENTIN [Suspect]
     Indication: NEUROPATHY PERIPHERAL
     Dosage: (600 MG, AS REQUIRED), ORAL
     Route: 048
  2. ASPIRIN [Concomitant]
  3. LISINOPRIL [Suspect]
     Indication: HYPERTENSION
     Dosage: (10 MG, 1 D),
     Dates: start: 20111222, end: 20111201
  4. HYDROCHLOROTHIAZIDE [Suspect]
     Indication: HYPERTENSION
     Dosage: (25 MG, 1 D)
     Dates: start: 20111222, end: 20111201
  5. TRAMADOL HCL [Concomitant]

REACTIONS (11)
  - COORDINATION ABNORMAL [None]
  - NASOPHARYNGITIS [None]
  - DIZZINESS [None]
  - PYREXIA [None]
  - EYE MOVEMENT DISORDER [None]
  - SOMNOLENCE [None]
  - AMNESIA [None]
  - FATIGUE [None]
  - NAUSEA [None]
  - DYSKINESIA [None]
  - DIPLOPIA [None]
